FAERS Safety Report 4337301-1 (Version None)
Quarter: 2004Q2

REPORT INFORMATION
  Report Type: 
  Country: None (occurrence: None)
  Receive Date: 20040413
  Receipt Date: 20030226
  Transmission Date: 20050107
  Serious: No
  Sender: FDA-Public Use
  Company Number: US-GLAXOSMITHKLINE-A0398141A

PATIENT
  Age: 62 Year
  Sex: Female

DRUGS (1)
  1. TIMENTIN [Suspect]
     Indication: PNEUMONIA
     Dosage: 3.1G FOUR TIMES PER DAY
     Route: 042
     Dates: start: 20030225, end: 20030327

REACTIONS (1)
  - ALOPECIA [None]
